FAERS Safety Report 8368127-X (Version None)
Quarter: 2012Q2

REPORT INFORMATION
  Report Type: 
  Country: None (occurrence: None)
  Receive Date: 20120517
  Receipt Date: 20120507
  Transmission Date: 20120825
  Serious: Yes (Hospitalization)
  Sender: FDA-Public Use
  Company Number: US-DX529-2012DX000114

PATIENT
  Age: 17 Year
  Sex: Female

DRUGS (7)
  1. CORTICOSTEROIDS [Concomitant]
     Indication: PRODUCT USED FOR UNKNOWN INDICATION
     Dates: start: 20120428, end: 20120428
  2. BERINERT [Concomitant]
     Indication: HEREDITARY ANGIOEDEMA
  3. KALBITOR [Suspect]
     Dates: start: 20120501, end: 20120501
  4. CINRYZE [Concomitant]
     Indication: HEREDITARY ANGIOEDEMA
     Dosage: DOSE UNIT:1000 UNITS
  5. PHENERGAN [Concomitant]
     Indication: PRODUCT USED FOR UNKNOWN INDICATION
     Dates: start: 20120428, end: 20120428
  6. KALBITOR [Suspect]
     Indication: HEREDITARY ANGIOEDEMA
     Route: 058
     Dates: start: 20120428, end: 20120428
  7. BENADRYL [Concomitant]
     Indication: PRODUCT USED FOR UNKNOWN INDICATION
     Dates: start: 20120428, end: 20120428

REACTIONS (2)
  - DEVICE RELATED INFECTION [None]
  - HEREDITARY ANGIOEDEMA [None]
